FAERS Safety Report 6296361-1 (Version None)
Quarter: 2009Q3

REPORT INFORMATION
  Report Type: 
  Country: None (occurrence: None)
  Receive Date: 20090804
  Receipt Date: 20090728
  Transmission Date: 20100115
  Serious: Yes (Death)
  Sender: FDA-Public Use
  Company Number: PHEH2009US08476

PATIENT
  Sex: Female

DRUGS (2)
  1. AFINITOR [Suspect]
     Dosage: 10 MG, QD
     Route: 048
  2. AFINITOR [Suspect]
     Dosage: 10 MG, QD
     Route: 048

REACTIONS (3)
  - DEATH [None]
  - DIARRHOEA [None]
  - VOMITING [None]
